FAERS Safety Report 17792761 (Version 2)
Quarter: 2020Q2

REPORT INFORMATION
  Report Type: Spontaneous
  Country: US (occurrence: US)
  Receive Date: 20200515
  Receipt Date: 20200518
  Transmission Date: 20200714
  Serious: Yes (Death)
  Sender: FDA-Public Use
  Company Number: US-PFIZER INC-2020191932

PATIENT
  Age: 72 Year
  Sex: Male
  Weight: 59 kg

DRUGS (4)
  1. KEYTRUDA [Concomitant]
     Active Substance: PEMBROLIZUMAB
     Indication: POLLAKIURIA
     Dosage: UNK (UNKNOWN DOSE, IT WAS AN INFUSION)
     Dates: start: 202002, end: 20200316
  2. SYNTHROID [Concomitant]
     Active Substance: LEVOTHYROXINE SODIUM
     Dosage: UNK
  3. INLYTA [Suspect]
     Active Substance: AXITINIB
     Indication: RENAL CELL CARCINOMA
     Dosage: 5 MG, 2X/DAY
     Route: 048
     Dates: start: 201911, end: 20200316
  4. MOBIC [Concomitant]
     Active Substance: MELOXICAM
     Dosage: UNK

REACTIONS (3)
  - Hypertension [Unknown]
  - Arthralgia [Recovering/Resolving]
  - Neoplasm progression [Fatal]
